FAERS Safety Report 9059494 (Version 3)
Quarter: 2023Q2

REPORT INFORMATION
  Report Type: Report from Study
  Country: US (occurrence: US)
  Receive Date: 20130211
  Receipt Date: 20230510
  Transmission Date: 20230722
  Serious: Yes (Hospitalization)
  Sender: FDA-Public Use
  Company Number: US-SHIRE-SPV1-2008-02237

PATIENT
  Age: 6 Year
  Sex: Male
  Weight: 20 kg

DRUGS (48)
  1. IDURSULFASE [Suspect]
     Active Substance: IDURSULFASE
     Indication: Mucopolysaccharidosis II
     Dosage: UNK
     Route: 042
     Dates: start: 20050607, end: 20060111
  2. IDURSULFASE [Suspect]
     Active Substance: IDURSULFASE
     Dosage: 0.5 MILLIGRAM/KILOGRAM, 1/WEEK
     Route: 042
     Dates: start: 20160613
  3. DIPHENHYDRAMINE [Concomitant]
     Active Substance: DIPHENHYDRAMINE
     Indication: Urticaria
     Dosage: 25 MILLIGRAM, 1/WEEK
     Route: 042
     Dates: start: 20070206
  4. DIPHENHYDRAMINE [Concomitant]
     Active Substance: DIPHENHYDRAMINE
     Indication: Pruritus
     Dosage: UNK
     Route: 042
     Dates: start: 20061212, end: 20061212
  5. DIPHENHYDRAMINE [Concomitant]
     Active Substance: DIPHENHYDRAMINE
     Dosage: UNK
     Route: 042
     Dates: start: 20061219, end: 20061219
  6. DIPHENHYDRAMINE [Concomitant]
     Active Substance: DIPHENHYDRAMINE
     Dosage: UNK
     Route: 042
     Dates: start: 20061226, end: 20070116
  7. DIPHENHYDRAMINE [Concomitant]
     Active Substance: DIPHENHYDRAMINE
     Dosage: UNK
     Route: 042
     Dates: start: 20070109, end: 2007
  8. DIPHENHYDRAMINE [Concomitant]
     Active Substance: DIPHENHYDRAMINE
     Dosage: UNK
     Route: 042
     Dates: start: 20070206, end: 20080123
  9. DIPHENHYDRAMINE [Concomitant]
     Active Substance: DIPHENHYDRAMINE
     Dosage: UNK
     Route: 042
     Dates: start: 20070206, end: 20070206
  10. UNSPECIFIED INGREDIENT [Concomitant]
     Active Substance: UNSPECIFIED INGREDIENT
     Indication: Vascular device user
     Dosage: 500 IU, 1X/WEEK
     Route: 042
     Dates: start: 20061206
  11. METHYLPREDNISOLONE [Concomitant]
     Active Substance: METHYLPREDNISOLONE
     Indication: Urticaria
     Dosage: UNK
     Route: 042
     Dates: start: 20061212, end: 20061212
  12. METHYLPREDNISOLONE [Concomitant]
     Active Substance: METHYLPREDNISOLONE
     Indication: Premedication
     Dosage: UNK
     Route: 042
     Dates: start: 20061226, end: 20070815
  13. METHYLPREDNISOLONE [Concomitant]
     Active Substance: METHYLPREDNISOLONE
     Dosage: UNK
     Route: 042
     Dates: start: 20070822, end: 20070926
  14. PREDNISONE [Concomitant]
     Active Substance: PREDNISONE
     Indication: Premedication
     Dosage: UNK
     Route: 048
     Dates: start: 20061218, end: 20071031
  15. PREDNISONE [Concomitant]
     Active Substance: PREDNISONE
     Dosage: UNK
     Route: 048
     Dates: start: 20071105, end: 20071205
  16. MIDAZOLAM [Concomitant]
     Active Substance: MIDAZOLAM
     Indication: Anxiety
     Dosage: UNK
     Route: 048
     Dates: start: 20061226, end: 20070206
  17. LIDOCAINE [Concomitant]
     Active Substance: LIDOCAINE
     Indication: Anaesthesia
     Dosage: UNK
     Route: 058
     Dates: start: 20070123, end: 20070123
  18. AMPICILLIN [Concomitant]
     Active Substance: AMPICILLIN
     Indication: Infection
     Dosage: UNK
     Route: 042
     Dates: start: 20080930, end: 20081001
  19. AMOXICILLIN [Concomitant]
     Active Substance: AMOXICILLIN
     Indication: Infection
     Dosage: UNK
     Route: 048
     Dates: start: 20081219
  20. IBUPROFEN [Concomitant]
     Active Substance: IBUPROFEN
     Indication: Premedication
     Dosage: UNK
     Route: 048
     Dates: start: 20090509
  21. ACETAMINOPHEN [Concomitant]
     Active Substance: ACETAMINOPHEN
     Indication: Premedication
     Dosage: UNK
     Route: 048
     Dates: start: 201305, end: 20141201
  22. ACETAMINOPHEN [Concomitant]
     Active Substance: ACETAMINOPHEN
     Indication: Pain prophylaxis
     Dosage: UNK
     Route: 042
     Dates: start: 20190516, end: 20190516
  23. CLINDAMYCIN [Concomitant]
     Active Substance: CLINDAMYCIN
     Indication: Hordeolum
     Dosage: UNK
     Route: 061
     Dates: start: 20161118, end: 20161201
  24. CLINDAMYCIN [Concomitant]
     Active Substance: CLINDAMYCIN
     Indication: Tracheitis
     Dosage: UNK
     Dates: start: 20180827, end: 20180829
  25. AUGMENTIN [Concomitant]
     Active Substance: AMOXICILLIN\CLAVULANATE POTASSIUM
     Indication: Submaxillary gland enlargement
     Dosage: UNK
     Route: 048
     Dates: start: 20180803, end: 20180813
  26. ALBUTEROL [Concomitant]
     Active Substance: ALBUTEROL
     Indication: Cough
     Dosage: UNK
     Route: 055
     Dates: start: 20180827
  27. FAMOTIDINE [Concomitant]
     Active Substance: FAMOTIDINE
     Indication: Gastrooesophageal reflux prophylaxis
     Dosage: UNK
     Route: 048
     Dates: start: 20180827, end: 20180831
  28. FAMOTIDINE [Concomitant]
     Active Substance: FAMOTIDINE
     Dosage: UNK
     Route: 048
     Dates: start: 20190516, end: 20190517
  29. AMPICILLIN SODIUM\SULBACTAM SODIUM [Concomitant]
     Active Substance: AMPICILLIN SODIUM\SULBACTAM SODIUM
     Indication: Tracheitis
     Dosage: UNK
     Route: 042
     Dates: start: 20180829, end: 20180831
  30. PROPOFOL [Concomitant]
     Active Substance: PROPOFOL
     Indication: Sedative therapy
     Dosage: UNK
     Route: 042
     Dates: start: 20180830, end: 20180830
  31. PROPOFOL [Concomitant]
     Active Substance: PROPOFOL
     Indication: Anaesthesia procedure
     Dosage: UNK
     Route: 042
     Dates: start: 20190516, end: 20190516
  32. HEPARIN LOCK FLUSH [Concomitant]
     Active Substance: HEPARIN SODIUM
     Indication: Hypoxia
     Dosage: UNK
     Route: 042
     Dates: start: 20190516, end: 20190516
  33. HEPARIN [Concomitant]
     Active Substance: HEPARIN SODIUM
     Indication: Hypoxia
     Dosage: UNK
     Route: 042
     Dates: start: 20190516, end: 20190516
  34. BUPIVACAINE [Concomitant]
     Active Substance: BUPIVACAINE
     Indication: Hypoxia
     Dosage: UNK
     Route: 050
     Dates: start: 20190516, end: 20190516
  35. SODIUM CHLORIDE [Concomitant]
     Active Substance: SODIUM CHLORIDE
     Indication: Hypoxia
     Dosage: UNK
     Route: 050
     Dates: start: 20190516, end: 20190516
  36. CIPROFLOXACIN [Concomitant]
     Active Substance: CIPROFLOXACIN
     Indication: Hypoxia
     Dosage: UNK
     Route: 050
     Dates: start: 20190516, end: 20190527
  37. OXYGEN [Concomitant]
     Active Substance: OXYGEN
     Indication: Mechanical ventilation
     Dosage: UNK
     Route: 055
     Dates: start: 20190516, end: 20190516
  38. NITROUS OXIDE [Concomitant]
     Active Substance: NITROUS OXIDE
     Indication: Anaesthesia
     Dosage: UNK
     Route: 055
     Dates: start: 20190516, end: 20190516
  39. FENTANYL [Concomitant]
     Active Substance: FENTANYL
     Indication: Anaesthesia procedure
     Dosage: UNK
     Dates: start: 20190516, end: 20190516
  40. DEXMEDETOMIDINE [Concomitant]
     Active Substance: DEXMEDETOMIDINE
     Dosage: UNK
     Route: 042
     Dates: start: 20190516, end: 20190516
  41. DEXAMETHASONE [Concomitant]
     Active Substance: DEXAMETHASONE
     Indication: Prophylaxis of nausea and vomiting
     Dosage: UNK
     Route: 042
     Dates: start: 20190516, end: 20190516
  42. ONDANSETRON [Concomitant]
     Active Substance: ONDANSETRON
     Indication: Prophylaxis of nausea and vomiting
     Dosage: UNK
     Route: 042
     Dates: start: 20190516, end: 20190516
  43. CEFAZOLIN [Concomitant]
     Active Substance: CEFAZOLIN
     Indication: Infection prophylaxis
     Dosage: UNK
     Dates: start: 20190516, end: 20190516
  44. LABETALOL [Concomitant]
     Active Substance: LABETALOL\LABETALOL HYDROCHLORIDE
     Indication: Blood pressure abnormal
     Dosage: UNK
     Route: 042
     Dates: start: 20190516, end: 20190516
  45. LACTATED RINGERS SOLUTION [Concomitant]
     Active Substance: CALCIUM CHLORIDE\POTASSIUM CHLORIDE\SODIUM CHLORIDE\SODIUM LACTATE
     Dosage: UNK
     Route: 042
     Dates: start: 20190516, end: 20190516
  46. OFLOXACIN [Concomitant]
     Active Substance: OFLOXACIN
     Dosage: UNK
     Route: 050
     Dates: start: 20190517, end: 20190517
  47. MULTIVITAMIN IRON [Concomitant]
     Indication: Hypoxia
     Dosage: UNK
     Route: 048
     Dates: start: 20190517, end: 20190517
  48. MULTIVITAMIN IRON [Concomitant]
     Indication: Nutritional supplementation

REACTIONS (1)
  - Epiglottic mass [Recovered/Resolved]

NARRATIVE: CASE EVENT DATE: 20081008
